FAERS Safety Report 15425590 (Version 2)
Quarter: 2018Q4

REPORT INFORMATION
  Report Type: Spontaneous
  Country: US (occurrence: US)
  Receive Date: 20180925
  Receipt Date: 20181002
  Transmission Date: 20190204
  Serious: Yes (Hospitalization, Other)
  Sender: FDA-Public Use
  Company Number: US-009507513-1809USA008941

PATIENT
  Sex: Male

DRUGS (1)
  1. KEYTRUDA [Suspect]
     Active Substance: PEMBROLIZUMAB
     Indication: LUNG NEOPLASM MALIGNANT
     Dosage: 200 MG EVERY 3 WEEKS
     Route: 042
     Dates: start: 20180820, end: 20180910

REACTIONS (6)
  - Malignant neoplasm progression [Unknown]
  - Tooth abscess [Unknown]
  - Blood sodium decreased [Unknown]
  - Anaemia [Unknown]
  - Drug ineffective [Unknown]
  - Neck mass [Unknown]

NARRATIVE: CASE EVENT DATE: 2018
